FAERS Safety Report 5927412-9 (Version None)
Quarter: 2008Q4

REPORT INFORMATION
  Report Type: 
  Country: None (occurrence: None)
  Receive Date: 20081021
  Receipt Date: 20081021
  Transmission Date: 20090506
  Serious: Yes (Hospitalization)
  Sender: FDA-Public Use
  Company Number: None

PATIENT

DRUGS (8)
  1. VANCOMYCIN [Suspect]
     Dosage: 1.50 GM @ 12 HR IV
     Route: 042
  2. COREG [Concomitant]
  3. LIBRIUM -CHLORDIAZEPINE- [Concomitant]
  4. DIGOXIN [Concomitant]
  5. FOLIC ACID [Concomitant]
  6. FUROSEMIDE [Concomitant]
  7. LORAZEPAM [Concomitant]
  8. METOPROLOL TARTRATE [Concomitant]

REACTIONS (2)
  - ANTIBIOTIC LEVEL ABOVE THERAPEUTIC [None]
  - BLOOD CREATININE INCREASED [None]
